FAERS Safety Report 8271750 (Version 3)
Quarter: 2013Q2

REPORT INFORMATION
  Report Type: Spontaneous
  Country: US (occurrence: None)
  Receive Date: 20111122
  Receipt Date: 20120703
  Transmission Date: 20140414
  Serious: Yes (Other)
  Sender: FDA-Public Use
  Company Number: PHHY2011US63205

PATIENT
  Age: 50 Year
  Sex: Female
  Weight: 70.7 kg

DRUGS (10)
  1. GILENYA [Suspect]
     Indication: RELAPSING-REMITTING MULTIPLE SCLEROSIS
     Dosage: 0.5 MG, QD, ORAL
     Route: 048
     Dates: start: 20110324
  2. SERTRALINE HYDROCHLORIDE [Concomitant]
  3. TRAZODONE HYDROCHLORIDE [Concomitant]
  4. DICLOFENAC SODIUM [Concomitant]
  5. SIMVASTATIN [Concomitant]
  6. BACLOFEN [Concomitant]
  7. WELLBUTRIN [Concomitant]
  8. LEVOTHYROXINE SODIUM [Concomitant]
  9. OXYCODONE (OXYCODONE) [Concomitant]
  10. MENEST ^MONARCH^ (ESTROGENS ESTERFIED) [Concomitant]

REACTIONS (3)
  - VISION BLURRED [None]
  - MEMORY IMPAIRMENT [None]
  - Balance disorder [None]
